FAERS Safety Report 10297878 (Version 1)
Quarter: 2014Q3

REPORT INFORMATION
  Report Type: Spontaneous
  Country: CA (occurrence: CA)
  Receive Date: 20140711
  Receipt Date: 20140711
  Transmission Date: 20150326
  Serious: Yes (Other)
  Sender: FDA-Public Use
  Company Number: CA-AMGEN-CANSP2014050885

PATIENT
  Age: 82 Year
  Sex: Female

DRUGS (6)
  1. PREMARIN [Concomitant]
     Active Substance: ESTROGENS, CONJUGATED
  2. VITAMIN B12 [Concomitant]
     Active Substance: CYANOCOBALAMIN
  3. VITAMIN C [Concomitant]
     Active Substance: ASCORBIC ACID
  4. PROLIA [Suspect]
     Active Substance: DENOSUMAB
     Indication: OSTEOPOROSIS POSTMENOPAUSAL
     Dosage: 60 MG, Q6MO
     Route: 058
     Dates: start: 20110825, end: 20140620
  5. NORVASC [Concomitant]
     Active Substance: AMLODIPINE BESYLATE
  6. CALCIUM [Concomitant]
     Active Substance: CALCIUM

REACTIONS (4)
  - Renal disorder [Unknown]
  - Erythropoiesis abnormal [Unknown]
  - Haemoglobin decreased [Unknown]
  - Weight decreased [Unknown]

NARRATIVE: CASE EVENT DATE: 201401
